FAERS Safety Report 24028584 (Version 1)
Quarter: 2024Q2

REPORT INFORMATION
  Report Type: Spontaneous
  Country: US (occurrence: US)
  Receive Date: 20240628
  Receipt Date: 20240628
  Transmission Date: 20240716
  Serious: No
  Sender: FDA-Public Use
  Company Number: US-SA-SAC20240619000917

PATIENT
  Sex: Male
  Weight: 31.2 kg

DRUGS (3)
  1. DUPIXENT [Suspect]
     Active Substance: DUPILUMAB
     Indication: Dermatitis atopic
     Dosage: 300 MG, QOW
     Route: 058
  2. ALBUTEROL SULFATE [Concomitant]
     Active Substance: ALBUTEROL SULFATE
     Dosage: UNK
  3. ACCUTANE [Concomitant]
     Active Substance: ISOTRETINOIN
     Dosage: UNK

REACTIONS (3)
  - Eyelids pruritus [Unknown]
  - Erythema of eyelid [Unknown]
  - Incorrect dose administered [Unknown]
